FAERS Safety Report 25438177 (Version 1)
Quarter: 2025Q2

REPORT INFORMATION
  Report Type: Spontaneous
  Country: DE (occurrence: DE)
  Receive Date: 20250616
  Receipt Date: 20250616
  Transmission Date: 20250717
  Serious: Yes (Hospitalization, Other)
  Sender: DR REDDYS
  Company Number: None

PATIENT
  Age: 24 Year
  Sex: Male
  Weight: 71.2 kg

DRUGS (8)
  1. POSACONAZOLE [Suspect]
     Active Substance: POSACONAZOLE
     Indication: Antifungal prophylaxis
     Dates: start: 202109, end: 2021
  2. DAUNORUBICIN [Suspect]
     Active Substance: DAUNORUBICIN
     Indication: Acute myeloid leukaemia
     Dosage: 119 MG, QD
     Route: 042
     Dates: start: 20210917, end: 20210919
  3. DAUNORUBICIN [Suspect]
     Active Substance: DAUNORUBICIN
     Dosage: ON DAYS 1 TO 3
     Route: 042
     Dates: start: 20210917, end: 2021
  4. CYTARABINE [Suspect]
     Active Substance: CYTARABINE
     Indication: Acute myeloid leukaemia
     Dosage: 396 MG, QD (CONTINUOUSLY)
     Route: 042
     Dates: start: 20210917, end: 20210921
  5. CYTARABINE [Suspect]
     Active Substance: CYTARABINE
     Route: 065
  6. CYTARABINE [Suspect]
     Active Substance: CYTARABINE
     Dates: start: 20210917, end: 2021
  7. MIDOSTAURIN [Suspect]
     Active Substance: MIDOSTAURIN
     Indication: Acute myeloid leukaemia
     Dosage: INITIATED ON DAY 8
     Route: 048
     Dates: start: 20210917, end: 20210929
  8. POSACONAZOLE [Concomitant]
     Active Substance: POSACONAZOLE
     Indication: Antifungal prophylaxis
     Dosage: 300 MG, QD (STOP UNKNOWN, PROBABLY AFTER ALLOGENEIC STEM CELL TRANSPLANT)
     Route: 048
     Dates: start: 20210916

REACTIONS (4)
  - Myocarditis [Recovered/Resolved]
  - Chest pain [Recovered/Resolved]
  - Myopericarditis [Recovered/Resolved]
  - Febrile neutropenia [Recovered/Resolved]

NARRATIVE: CASE EVENT DATE: 20210929
